FAERS Safety Report 6955854-1 (Version None)
Quarter: 2010Q3

REPORT INFORMATION
  Report Type: 
  Country: None (occurrence: None)
  Receive Date: 20100830
  Receipt Date: 20100818
  Transmission Date: 20110219
  Serious: Yes (Other)
  Sender: FDA-Public Use
  Company Number: US-WATSON-2010-11267

PATIENT
  Age: 65 Year
  Sex: Female

DRUGS (2)
  1. LIDOCAINE HCL [Suspect]
     Indication: BRONCHOSCOPY
     Dosage: 10 ML 2% EACH TO UPPER AND LOWER AIRWAYS
  2. DAPSONE [Suspect]
     Indication: ANTIFUNGAL PROPHYLAXIS
     Dosage: UNK

REACTIONS (1)
  - METHAEMOGLOBINAEMIA [None]
